FAERS Safety Report 18479022 (Version 1)
Quarter: 2020Q4

REPORT INFORMATION
  Report Type: Spontaneous
  Country: US (occurrence: US)
  Receive Date: 20201109
  Receipt Date: 20201109
  Transmission Date: 20210114
  Serious: No
  Sender: FDA-Public Use
  Company Number: US-AMGEN-USASP2020178154

PATIENT
  Sex: Female

DRUGS (2)
  1. PROLIA [Suspect]
     Active Substance: DENOSUMAB
     Indication: OSTEOPOROSIS POSTMENOPAUSAL
     Dosage: UNK
     Route: 065
  2. CALCIUM [Concomitant]
     Active Substance: CALCIUM
     Dosage: UNK, QD

REACTIONS (7)
  - Weight increased [Unknown]
  - Gastrooesophageal reflux disease [Unknown]
  - Sciatica [Unknown]
  - Bone pain [Unknown]
  - Arthralgia [Unknown]
  - Groin pain [Unknown]
  - Back pain [Not Recovered/Not Resolved]
